FAERS Safety Report 9744917 (Version 1)
Quarter: 2013Q4

REPORT INFORMATION
  Report Type: Spontaneous
  Country: US (occurrence: US)
  Receive Date: 20131211
  Receipt Date: 20131211
  Transmission Date: 20140711
  Serious: No
  Sender: FDA-Public Use
  Company Number: US-009507513-1312USA003580

PATIENT
  Age: 76 Year
  Sex: Female

DRUGS (5)
  1. NASONEX [Suspect]
     Indication: RHINITIS ALLERGIC
     Dosage: 50 MCG/ TWO SPRAYS IN EACH NOSTRIL, ONCE DAILY
     Route: 045
     Dates: start: 201311
  2. LYRICA [Concomitant]
  3. ALLOPURINOL [Concomitant]
  4. LABETALOL HYDROCHLORIDE [Concomitant]
  5. XANAX [Concomitant]

REACTIONS (1)
  - Drug ineffective [Recovering/Resolving]
